FAERS Safety Report 5492649-2 (Version None)
Quarter: 2007Q4

REPORT INFORMATION
  Report Type: 
  Country: None (occurrence: None)
  Receive Date: 20071022
  Receipt Date: 20071010
  Transmission Date: 20080405
  Serious: Yes (Hospitalization, Other)
  Sender: FDA-Public Use
  Company Number: US-PFIZER INC-2007085327

PATIENT
  Sex: Male
  Weight: 90.909 kg

DRUGS (1)
  1. CHANTIX [Suspect]
     Indication: SMOKING CESSATION THERAPY
     Dates: start: 20070501, end: 20070508

REACTIONS (7)
  - BLOOD PRESSURE DECREASED [None]
  - DEHYDRATION [None]
  - DELIRIUM [None]
  - EYES SUNKEN [None]
  - ILL-DEFINED DISORDER [None]
  - MALAISE [None]
  - SOMNOLENCE [None]
